FAERS Safety Report 11423002 (Version 3)
Quarter: 2015Q4

REPORT INFORMATION
  Report Type: Spontaneous
  Country: JP (occurrence: JP)
  Receive Date: 20150827
  Receipt Date: 20151112
  Transmission Date: 20160304
  Serious: Yes (Death, Other)
  Sender: FDA-Public Use
  Company Number: JP-PFIZER INC-2015282392

PATIENT
  Age: 88 Year
  Sex: Female
  Weight: 40 kg

DRUGS (3)
  1. AMICALIQ [Concomitant]
     Dosage: 1000 ML, DAILY
     Route: 041
  2. ZOSYN [Suspect]
     Active Substance: PIPERACILLIN SODIUM\TAZOBACTAM SODIUM
     Indication: PNEUMONIA ASPIRATION
     Dosage: 4.5 G, 3X/DAY
     Route: 041
     Dates: start: 20150728, end: 20150809
  3. VITAMEDIN /00176001/ [Concomitant]
     Dosage: 1 A, DAILY
     Route: 042

REACTIONS (1)
  - Renal failure [Fatal]

NARRATIVE: CASE EVENT DATE: 20150807
